FAERS Safety Report 15075441 (Version 1)
Quarter: 2018Q2

REPORT INFORMATION
  Report Type: Report from Study
  Country: US (occurrence: US)
  Receive Date: 20180627
  Receipt Date: 20180627
  Transmission Date: 20180711
  Serious: Yes (Other)
  Sender: FDA-Public Use
  Company Number: US-SAOL THERAPEUTICS-2018SAO00648

PATIENT
  Age: 45 Year

DRUGS (19)
  1. DILAUDID [Suspect]
     Active Substance: HYDROMORPHONE HYDROCHLORIDE
     Dosage: 1.500 MG, \DAY
     Route: 037
  2. CLONIDINE. [Suspect]
     Active Substance: CLONIDINE
     Dosage: 111.85 ?G, \DAY MAX
     Route: 037
  3. CLONIDINE. [Suspect]
     Active Substance: CLONIDINE
     Dosage: 129.21 ?G, \DAY, MAX
     Route: 037
     Dates: start: 20180319
  4. MORPHINE [Suspect]
     Active Substance: MORPHINE
     Dosage: 1.797 MG, \DAY
     Route: 037
     Dates: start: 20180319
  5. COMPOUNDED BACLOFEN [Suspect]
     Active Substance: BACLOFEN
     Dosage: 172.28 ?G, \DAY, MAX
     Route: 037
     Dates: start: 20180319
  6. CLONIDINE. [Suspect]
     Active Substance: CLONIDINE
     Dosage: 90.02 ?G, \DAY
     Route: 037
  7. MORPHINE [Suspect]
     Active Substance: MORPHINE
     Dosage: 2.153 MG, \DAY, MAX
     Route: 037
     Dates: start: 20180319
  8. COMPOUNDED BACLOFEN [Suspect]
     Active Substance: BACLOFEN
     Dosage: 143.76 ?G, \DAY
     Route: 037
     Dates: start: 20180319
  9. DILAUDID [Suspect]
     Active Substance: HYDROMORPHONE HYDROCHLORIDE
     Dosage: UNK
     Route: 037
     Dates: start: 20180319
  10. BUPIVACAINE. [Suspect]
     Active Substance: BUPIVACAINE
     Dosage: 18.004 MG, \DAY
     Route: 037
  11. DILAUDID [Suspect]
     Active Substance: HYDROMORPHONE HYDROCHLORIDE
     Dosage: 1.864 MG, \DAY
     Route: 037
  12. BUPIVACAINE. [Suspect]
     Active Substance: BUPIVACAINE
     Dosage: 21.564 MG, \DAY
     Route: 037
     Dates: start: 20180319
  13. MORPHINE [Suspect]
     Active Substance: MORPHINE
     Dosage: 1.500 MG, \DAY
     Route: 037
  14. MORPHINE [Suspect]
     Active Substance: MORPHINE
     Dosage: 1.864 MG, \DAY
     Route: 037
  15. COMPOUNDED BACLOFEN [Suspect]
     Active Substance: BACLOFEN
     Dosage: 120.03 ?G, \DAY
     Route: 037
  16. COMPOUNDED BACLOFEN [Suspect]
     Active Substance: BACLOFEN
     Dosage: 149.14 ?G, \DAY MAX
     Route: 037
  17. CLONIDINE. [Suspect]
     Active Substance: CLONIDINE
     Dosage: 107.82 ?G, \DAY
     Route: 037
     Dates: start: 20180319
  18. BUPIVACAINE. [Suspect]
     Active Substance: BUPIVACAINE
     Dosage: 22.371 MG, \DAY MAX
     Route: 037
  19. BUPIVACAINE. [Suspect]
     Active Substance: BUPIVACAINE
     Dosage: 25.842 MG, \DAY, MAX
     Route: 037
     Dates: start: 20180319

REACTIONS (7)
  - Yawning [Recovered/Resolved]
  - Anxiety [Recovered/Resolved]
  - Pain [Recovered/Resolved]
  - Chills [None]
  - Diarrhoea [Recovered/Resolved]
  - Drug withdrawal syndrome [Recovered/Resolved]
  - Implant site pain [Unknown]

NARRATIVE: CASE EVENT DATE: 20180220
